FAERS Safety Report 6829878-9 (Version None)
Quarter: 2010Q3

REPORT INFORMATION
  Report Type: 
  Country: None (occurrence: None)
  Receive Date: 20100710
  Receipt Date: 20100629
  Transmission Date: 20110219
  Serious: No
  Sender: FDA-Public Use
  Company Number: US-JNJFOC-20100700270

PATIENT
  Sex: Female
  Weight: 70.31 kg

DRUGS (8)
  1. FENTANYL CITRATE [Suspect]
     Indication: ARTHRALGIA
     Route: 062
  2. FENTANYL CITRATE [Suspect]
     Dosage: NDC# 0781-7243-55
     Route: 062
  3. IRON [Concomitant]
     Indication: ANAEMIA
     Route: 048
  4. BIOFLEX [Concomitant]
     Dosage: DAILY.
     Route: 048
  5. CRANBERRY PILL [Concomitant]
     Dosage: DAILY
     Route: 048
  6. HYDROCODONE BITARTRATE [Concomitant]
     Indication: PAIN
     Dosage: 2 TABLETS DAILY
     Route: 048
  7. TRIAMTERENE [Concomitant]
     Indication: HYPERTENSION
     Dosage: 37MG/25MG DAILY
     Route: 048
  8. MIRTAZAPINE [Concomitant]
     Route: 048

REACTIONS (2)
  - DRUG INEFFECTIVE [None]
  - WRONG TECHNIQUE IN DRUG USAGE PROCESS [None]
